FAERS Safety Report 19503380 (Version 1)
Quarter: 2021Q3

REPORT INFORMATION
  Report Type: Spontaneous
  Country: PL (occurrence: PL)
  Receive Date: 20210707
  Receipt Date: 20210707
  Transmission Date: 20211014
  Serious: Yes (Other)
  Sender: FDA-Public Use
  Company Number: PL-UCBSA-2021031135

PATIENT
  Age: 52 Year
  Sex: Male

DRUGS (9)
  1. LEVETIRACETAM. [Suspect]
     Active Substance: LEVETIRACETAM
     Indication: SEIZURE
     Dosage: 1000 MILLIGRAM DAILY
  2. GABAPENTIN. [Concomitant]
     Active Substance: GABAPENTIN
     Indication: EPILEPSY
     Dosage: 2400 MILLIGRAMS DAILY
  3. CARBAMAZEPINE. [Concomitant]
     Active Substance: CARBAMAZEPINE
     Indication: EPILEPSY
     Dosage: 1200 MILLIGRAM DAILY
  4. DIAZEPAM. [Concomitant]
     Active Substance: DIAZEPAM
     Indication: EPILEPSY
     Dosage: 40 MILLIGRAM
  5. DIAZEPAM. [Concomitant]
     Active Substance: DIAZEPAM
     Dosage: 34 MILLIGRAM
  6. DIAZEPAM. [Concomitant]
     Active Substance: DIAZEPAM
     Dosage: 3 MILLIGRAM PER DAY
  7. DIAZEPAM. [Concomitant]
     Active Substance: DIAZEPAM
     Dosage: 1?2 MG PER DAY
  8. LEVETIRACETAM. [Suspect]
     Active Substance: LEVETIRACETAM
     Dosage: 2000 MILLIGRAM PER DAY
  9. DIAZEPAM. [Concomitant]
     Active Substance: DIAZEPAM
     Dosage: 1 MILIGRAM PER WEEK

REACTIONS (4)
  - Altered state of consciousness [Unknown]
  - Aura [Unknown]
  - Seizure [Unknown]
  - Myoclonus [Unknown]
